FAERS Safety Report 4409175-1 (Version None)
Quarter: 2004Q2

REPORT INFORMATION
  Report Type: 
  Country: None (occurrence: None)
  Receive Date: 20040618
  Receipt Date: 20040416
  Transmission Date: 20050107
  Serious: No
  Sender: FDA-Public Use
  Company Number: US-JNJFOC-20040404405

PATIENT
  Age: 23 Year
  Sex: Female
  Weight: 54.4316 kg

DRUGS (4)
  1. ORTHO EVRA [Suspect]
     Indication: CONTRACEPTION
     Dosage: 1 DOSE(S), 3 IN 4 WEEK, TRANSDERMAL
     Route: 062
     Dates: start: 20030801
  2. CIPRO [Concomitant]
  3. BACTRIM [Concomitant]
  4. MACROBID [Concomitant]

REACTIONS (1)
  - CYSTITIS [None]
